FAERS Safety Report 20049031 (Version 1)
Quarter: 2021Q4

REPORT INFORMATION
  Report Type: Spontaneous
  Country: CA (occurrence: CA)
  Receive Date: 20211109
  Receipt Date: 20211109
  Transmission Date: 20220303
  Serious: Yes (Death)
  Sender: FDA-Public Use
  Company Number: CA-TEVA-2021-CA-1973922

PATIENT
  Age: 72 Year
  Sex: Female
  Weight: 61 kg

DRUGS (15)
  1. ONDANSETRON HYDROCHLORIDE [Suspect]
     Active Substance: ONDANSETRON HYDROCHLORIDE
     Route: 065
  2. MELATONIN [Suspect]
     Active Substance: MELATONIN
     Dosage: 3 MILLIGRAM DAILY;
     Route: 060
  3. LAMOTRIGINE [Concomitant]
     Active Substance: LAMOTRIGINE
  4. BENZTROPINE [Concomitant]
     Active Substance: BENZTROPINE
  5. BISACODYL [Concomitant]
     Active Substance: BISACODYL
  6. BUPROPION [Concomitant]
     Active Substance: BUPROPION
     Route: 065
  7. CLONAZEPAM [Concomitant]
     Active Substance: CLONAZEPAM
  8. FLOVENT [Concomitant]
     Active Substance: FLUTICASONE PROPIONATE
  9. LINACLOTIDE [Concomitant]
     Active Substance: LINACLOTIDE
  10. POLYETHYLENE GLYCOL 3350 [Concomitant]
     Active Substance: POLYETHYLENE GLYCOL 3350
     Route: 065
  11. POTASSIUM CHLORIDE [Concomitant]
     Active Substance: POTASSIUM CHLORIDE
  12. PREMARIN [Concomitant]
     Active Substance: ESTROGENS, CONJUGATED
  13. PREVACID [Concomitant]
     Active Substance: LANSOPRAZOLE
  14. SODIUM CITRATE\SODIUM LAURYL SULFOACETATE [Concomitant]
     Active Substance: SODIUM CITRATE\SODIUM LAURYL SULFOACETATE
  15. SYNTHROID [Concomitant]
     Active Substance: LEVOTHYROXINE SODIUM

REACTIONS (1)
  - Cardiac arrest [Fatal]
